FAERS Safety Report 12010294 (Version 1)
Quarter: 2016Q1

REPORT INFORMATION
  Report Type: Spontaneous
  Country: JP (occurrence: JP)
  Receive Date: 20160205
  Receipt Date: 20160205
  Transmission Date: 20160526
  Serious: Yes (Hospitalization)
  Sender: FDA-Public Use
  Company Number: JP-CONCORDIA PHARMACEUTICALS INC.-CO-ZO-JP-2016-013

PATIENT
  Age: 68 Year
  Sex: Male

DRUGS (14)
  1. TRERIEF [Suspect]
     Active Substance: ZONISAMIDE
     Indication: PARKINSON^S DISEASE
     Route: 048
     Dates: start: 20100915, end: 20151201
  2. NEUPRO [Suspect]
     Active Substance: ROTIGOTINE
     Indication: PARKINSON^S DISEASE
     Route: 062
     Dates: start: 20150330, end: 20151201
  3. NEODOPASTON [Suspect]
     Active Substance: CARBIDOPA\LEVODOPA
     Indication: PARKINSON^S DISEASE
     Route: 048
     Dates: start: 2001, end: 20150802
  4. CARBAMAZEPINE. [Concomitant]
     Active Substance: CARBAMAZEPINE
     Indication: AGITATION
  5. YOKUKANSAN [Concomitant]
     Active Substance: HERBALS
     Indication: DELUSION
     Route: 048
  6. YOKUKANSAN [Concomitant]
     Active Substance: HERBALS
     Indication: AGITATION
  7. NEODOPASTON [Suspect]
     Active Substance: CARBIDOPA\LEVODOPA
     Route: 048
     Dates: start: 20150803
  8. PERMAX [Suspect]
     Active Substance: PERGOLIDE
     Indication: PARKINSON^S DISEASE
     Route: 048
     Dates: start: 2002, end: 20151201
  9. COMTAN [Concomitant]
     Active Substance: ENTACAPONE
     Indication: PARKINSON^S DISEASE
     Route: 048
  10. CARBAMAZEPINE. [Concomitant]
     Active Substance: CARBAMAZEPINE
     Indication: DELUSION
     Route: 048
     Dates: start: 20151121, end: 20151205
  11. DEPAKEKE R [Concomitant]
     Indication: DELUSION
     Route: 048
     Dates: start: 20151121, end: 20151208
  12. DEPAKEKE R [Concomitant]
     Indication: AGITATION
  13. ARICEPT [Concomitant]
     Active Substance: DONEPEZIL HYDROCHLORIDE
     Indication: DELUSION
     Route: 048
  14. NOURIAST [Concomitant]
     Active Substance: ISTRADEFYLLINE
     Indication: PARKINSON^S DISEASE
     Route: 048
     Dates: start: 20150223, end: 20151201

REACTIONS (2)
  - Impulse-control disorder [Recovering/Resolving]
  - Delirium [Unknown]

NARRATIVE: CASE EVENT DATE: 20150910
